FAERS Safety Report 8044317-0 (Version None)
Quarter: 2012Q1

REPORT INFORMATION
  Report Type: 
  Country: None (occurrence: None)
  Receive Date: 20120113
  Receipt Date: 20120109
  Transmission Date: 20120608
  Serious: Yes (Hospitalization)
  Sender: FDA-Public Use
  Company Number: US-SANOFI-AVENTIS-2011SA078230

PATIENT
  Age: 71 Year
  Sex: Female

DRUGS (8)
  1. GEMFIBROZIL [Concomitant]
  2. LANTUS [Suspect]
     Dosage: 22 UNITS EVERY MORNING AND 20 UNITS EVERY EVENING
     Route: 058
  3. NOVOLOG [Concomitant]
     Indication: BLOOD GLUCOSE INCREASED
     Dosage: DOSE:13 UNIT(S)
  4. DILTIAZEM HCL [Concomitant]
     Indication: HYPERTENSION
  5. SOLOSTAR [Suspect]
  6. ATENOLOL [Concomitant]
     Indication: ANGINA PECTORIS
  7. DIGOXIN [Concomitant]
     Indication: ATRIAL FIBRILLATION
  8. TOPIRAMATE [Concomitant]

REACTIONS (1)
  - CARDIAC FAILURE CONGESTIVE [None]
